FAERS Safety Report 7306550-2 (Version None)
Quarter: 2011Q1

REPORT INFORMATION
  Report Type: 
  Country: None (occurrence: None)
  Receive Date: 20110119
  Receipt Date: 20101014
  Transmission Date: 20110831
  Serious: Yes (Other)
  Sender: FDA-Public Use
  Company Number: A-US2010-40701

PATIENT
  Age: 64 Year
  Sex: Female

DRUGS (4)
  1. REVATIO [Concomitant]
  2. COUMADIN [Concomitant]
  3. TRACLEER [Suspect]
     Indication: PULMONARY ARTERIAL HYPERTENSION
     Dosage: ORAL
     Route: 048
     Dates: start: 20100420
  4. CALCIUM CHANNEL BLOCKERS [Concomitant]

REACTIONS (2)
  - TRANSFUSION [None]
  - RED BLOOD CELL COUNT DECREASED [None]
